FAERS Safety Report 6675668-X (Version None)
Quarter: 2010Q2

REPORT INFORMATION
  Report Type: 
  Country: None (occurrence: None)
  Receive Date: 20100409
  Receipt Date: 20100326
  Transmission Date: 20101027
  Serious: Yes (Other)
  Sender: FDA-Public Use
  Company Number: ES-ELI_LILLY_AND_COMPANY-ES201003007667

PATIENT
  Sex: Female
  Weight: 83 kg

DRUGS (6)
  1. FORTEO [Suspect]
     Indication: FOOT FRACTURE
     Dosage: 20 UG, DAILY (1/D)
     Route: 058
     Dates: start: 20091007
  2. ENALAPRIL MALEATE [Concomitant]
     Dosage: 10 MG, DAILY (1/D)
     Route: 065
  3. NUCLOSINA [Concomitant]
     Dosage: UNK, DAILY (1/D)
     Route: 065
  4. SINVASTATINA [Concomitant]
     Dosage: 20 MG, DAILY (1/D)
     Route: 065
  5. MOTENS [Concomitant]
     Dosage: 4 MG, DAILY (1/D)
     Route: 065
  6. NATECAL [Concomitant]
     Dosage: UNK, DAILY (1/D)
     Route: 065

REACTIONS (1)
  - BREAST MASS [None]
